FAERS Safety Report 19922579 (Version 1)
Quarter: 2021Q4

REPORT INFORMATION
  Report Type: Spontaneous
  Country: PL (occurrence: PL)
  Receive Date: 20211005
  Receipt Date: 20211005
  Transmission Date: 20220303
  Serious: Yes (Hospitalization, Other)
  Sender: FDA-Public Use
  Company Number: PL-TEVA-2021-PL-1961778

PATIENT
  Age: 67 Year
  Sex: Male

DRUGS (4)
  1. CLOPIDOGREL [Suspect]
     Active Substance: CLOPIDOGREL BISULFATE
     Dosage: 600 MG
     Route: 065
  2. ASPIRIN [Concomitant]
     Active Substance: ASPIRIN
     Dosage: 300MG
  3. ENOXAPARIN [Concomitant]
     Active Substance: ENOXAPARIN
     Route: 058
  4. LEVOFLOXACIN [Concomitant]
     Active Substance: LEVOFLOXACIN
     Indication: COVID-19

REACTIONS (2)
  - Drug resistance [Unknown]
  - Electrocardiogram ST segment elevation [Recovered/Resolved]
